FAERS Safety Report 8241286-5 (Version None)
Quarter: 2012Q1

REPORT INFORMATION
  Report Type: 
  Country: None (occurrence: None)
  Receive Date: 20120328
  Receipt Date: 20120322
  Transmission Date: 20120608
  Serious: No
  Sender: FDA-Public Use
  Company Number: US-PFIZER INC-2012075227

PATIENT
  Sex: Female
  Weight: 63.492 kg

DRUGS (9)
  1. NICOTINIC ACID AMIDE [Concomitant]
     Dosage: 5000 IU, DAILY
  2. ANASTROZOLE [Concomitant]
     Indication: BREAST CANCER FEMALE
     Dosage: 1 MG, DAILY
  3. ASPIRIN [Concomitant]
     Dosage: 81 MG, DAILY
  4. MULTI-VITAMINS [Concomitant]
     Dosage: UNK, DAILY
  5. VERAPAMIL [Concomitant]
     Indication: HYPERTENSION
     Dosage: 240 MG, DAILY
  6. PRAVASTATIN [Concomitant]
     Dosage: 40 MG, DAILY
  7. LEVOTHYROXINE [Concomitant]
     Indication: THYROID DISORDER
     Dosage: 100 UG, DAILY
  8. LYRICA [Suspect]
     Indication: NEURALGIA
     Dosage: 75 MG, DAILY
     Dates: start: 20120101
  9. CALCIUM CARBONATE/COLECALCIFEROL/MINERALS NOS [Concomitant]
     Dosage: UNK, DAILY

REACTIONS (2)
  - DRUG INEFFECTIVE [None]
  - OEDEMA PERIPHERAL [None]
